FAERS Safety Report 9055019 (Version 4)
Quarter: 2013Q1

REPORT INFORMATION
  Report Type: Spontaneous
  Country: DK (occurrence: IE)
  Receive Date: 20130206
  Receipt Date: 20130328
  Transmission Date: 20140127
  Serious: Yes (Other)
  Sender: FDA-Public Use
  Company Number: IE-FRI-1000042406

PATIENT
  Age: 25 Year
  Sex: Female

DRUGS (4)
  1. LEXAPRO [Suspect]
     Indication: DEPRESSION
     Dosage: 10 MG
     Route: 048
     Dates: start: 20121227
  2. LEXAPRO [Suspect]
     Dosage: 5 MG
     Route: 048
     Dates: end: 201301
  3. CILEST [Concomitant]
     Indication: ORAL CONTRACEPTION
     Route: 048
  4. XANAX [Concomitant]
     Dates: start: 201212

REACTIONS (9)
  - Lethargy [Recovered/Resolved]
  - Bruxism [Recovered/Resolved]
  - Sleep disorder [Recovered/Resolved]
  - Fatigue [Recovered/Resolved]
  - Myalgia [Recovered/Resolved]
  - Confusional state [Recovered/Resolved]
  - Memory impairment [Recovered/Resolved]
  - Hyperhidrosis [Recovered/Resolved]
  - Seizure like phenomena [Recovered/Resolved]
